FAERS Safety Report 15956190 (Version 2)
Quarter: 2019Q1

REPORT INFORMATION
  Report Type: Spontaneous
  Country: JP (occurrence: JP)
  Receive Date: 20190213
  Receipt Date: 20190225
  Transmission Date: 20190417
  Serious: Yes (Death, Life-Threatening, Hospitalization)
  Sender: FDA-Public Use
  Company Number: JP-SHIONOGI, INC-2019000104

PATIENT
  Age: 64 Year
  Sex: Male
  Weight: 45.1 kg

DRUGS (10)
  1. SYMPROIC [Suspect]
     Active Substance: NALDEMEDINE
     Dosage: 0.2 MG, QD
     Route: 065
     Dates: end: 20190112
  2. CALONAL [Concomitant]
     Active Substance: ACETAMINOPHEN
     Dosage: 500 MG, QID
     Route: 065
     Dates: end: 20190112
  3. METHAPAIN [Suspect]
     Active Substance: METHADONE HYDROCHLORIDE
     Indication: METASTASES TO LYMPH NODES
     Dosage: 15 MG, TID
     Route: 048
     Dates: start: 20181227, end: 20190110
  4. METHAPAIN [Suspect]
     Active Substance: METHADONE HYDROCHLORIDE
     Dosage: 50 MG, UNK
     Route: 048
     Dates: start: 20190111, end: 20190112
  5. MAGNESIUM OXIDE. [Concomitant]
     Active Substance: MAGNESIUM OXIDE
     Dosage: 330 MG, BID
     Route: 065
     Dates: end: 20190112
  6. METHAPAIN [Suspect]
     Active Substance: METHADONE HYDROCHLORIDE
     Indication: METASTASES TO BONE
     Dosage: 10 MG, TID
     Route: 048
     Dates: start: 20181218, end: 20181227
  7. RINDERON                           /00008501/ [Concomitant]
     Active Substance: BETAMETHASONE
     Dosage: 1 MG, QD
     Route: 065
     Dates: end: 20190112
  8. TAKECAB [Concomitant]
     Active Substance: VONOPRAZAN FUMURATE
     Dosage: 10 MG, QD
     Route: 065
     Dates: end: 20190112
  9. REFLEX                             /00021218/ [Concomitant]
     Active Substance: PICOLAMINE SALICYLATE
     Dosage: 15 MG, QD
     Route: 065
     Dates: end: 20190112
  10. LAC-B [Concomitant]
     Active Substance: BIFIDOBACTERIUM SPP.
     Dosage: 1 DF, TID
     Route: 065
     Dates: end: 20190112

REACTIONS (5)
  - Hypoglycaemia [Fatal]
  - Liver disorder [Fatal]
  - Hypercapnia [Fatal]
  - Hyperkalaemia [Fatal]
  - Lung neoplasm malignant [Fatal]

NARRATIVE: CASE EVENT DATE: 20190107
